FAERS Safety Report 9807732 (Version 7)
Quarter: 2014Q3

REPORT INFORMATION
  Report Type: Report from Study
  Country: US (occurrence: US)
  Receive Date: 20140110
  Receipt Date: 20140821
  Transmission Date: 20150326
  Serious: Yes (Hospitalization, Other)
  Sender: FDA-Public Use
  Company Number: US-SA-2014SA001280

PATIENT
  Age: 72 Year
  Sex: Female
  Weight: 63.3 kg

DRUGS (21)
  1. SINGULAIR [Concomitant]
     Active Substance: MONTELUKAST SODIUM
     Indication: HYPERSENSITIVITY
     Route: 048
     Dates: start: 2010
  2. VITAMIN B6 [Concomitant]
     Active Substance: PYRIDOXINE HYDROCHLORIDE
     Indication: NEUROPATHY PERIPHERAL
     Route: 048
     Dates: start: 2010
  3. WELLBUTRIN [Concomitant]
     Active Substance: BUPROPION HYDROCHLORIDE
     Indication: DEPRESSION
     Route: 048
     Dates: start: 2010
  4. HYDROCODONE/PARACETAMOL [Concomitant]
     Active Substance: ACETAMINOPHEN\HYDROCODONE BITARTRATE
     Indication: PAIN
     Dosage: 1-2 TABLETS, Q4-6H
     Route: 048
     Dates: start: 201104
  5. NASACORT [Concomitant]
     Active Substance: TRIAMCINOLONE ACETONIDE
     Indication: HYPERSENSITIVITY
     Dosage: 2 SPRAYS DAILY AS NEEDED
     Route: 045
     Dates: start: 2009
  6. XANAX [Concomitant]
     Active Substance: ALPRAZOLAM
     Indication: ANXIETY
     Dosage: FOR 30 DAYS PRN
     Route: 048
     Dates: start: 201304
  7. CALCIUM/VITAMIN D [Concomitant]
     Active Substance: CALCIUM\VITAMIN D
     Route: 048
     Dates: start: 20120404
  8. HYDROCHLOROTHIAZIDE. [Concomitant]
     Active Substance: HYDROCHLOROTHIAZIDE
     Indication: HYPERTENSION
     Route: 048
     Dates: start: 201104
  9. ALL OTHER THERAPEUTIC PRODUCTS [Concomitant]
     Active Substance: UNSPECIFIED INGREDIENT
     Route: 048
     Dates: start: 201309
  10. DEXILANT [Concomitant]
     Active Substance: DEXLANSOPRAZOLE
     Route: 048
     Dates: start: 20121001
  11. ALBUTEROL. [Concomitant]
     Active Substance: ALBUTEROL
     Indication: COUGH
     Dosage: DOSE:2 PUFF(S)
     Route: 055
     Dates: start: 2010
  12. AMLODIPINE BESILATE [Concomitant]
     Active Substance: AMLODIPINE BESYLATE
     Indication: HYPERTENSION
     Route: 048
     Dates: start: 2008
  13. MUCINEX [Concomitant]
     Active Substance: GUAIFENESIN
     Indication: HYPERSENSITIVITY
     Route: 048
     Dates: start: 2008
  14. QVAR [Concomitant]
     Active Substance: BECLOMETHASONE DIPROPIONATE
     Dosage: DOSE:2 PUFF(S)
     Route: 055
     Dates: start: 201301
  15. ZOLPIDEM TARTRATE. [Concomitant]
     Active Substance: ZOLPIDEM TARTRATE
     Indication: INSOMNIA
     Dosage: AS NEEDED
     Route: 048
     Dates: start: 201208
  16. AFLIBERCEPT [Suspect]
     Active Substance: AFLIBERCEPT
     Indication: NEOPLASM MALIGNANT
     Route: 042
     Dates: start: 20131211, end: 20131211
  17. AFLIBERCEPT [Suspect]
     Active Substance: AFLIBERCEPT
     Indication: NEOPLASM MALIGNANT
     Route: 042
     Dates: start: 20131113, end: 20131113
  18. GUAIFENESIN. [Concomitant]
     Active Substance: GUAIFENESIN
     Indication: PULMONARY CONGESTION
     Route: 048
     Dates: start: 201108
  19. SAR307746 [Suspect]
     Active Substance: UNSPECIFIED INGREDIENT
     Indication: NEOPLASM MALIGNANT
     Route: 042
     Dates: start: 20131211, end: 20131211
  20. SAR307746 [Suspect]
     Active Substance: UNSPECIFIED INGREDIENT
     Indication: NEOPLASM MALIGNANT
     Route: 042
     Dates: start: 20131113, end: 20131113
  21. ZYRTEC [Concomitant]
     Active Substance: CETIRIZINE HYDROCHLORIDE
     Indication: HYPERSENSITIVITY
     Route: 048
     Dates: start: 201210

REACTIONS (4)
  - Aphasia [Recovering/Resolving]
  - Ascites [Unknown]
  - Encephalopathy [Recovering/Resolving]
  - Cognitive disorder [Recovering/Resolving]

NARRATIVE: CASE EVENT DATE: 20140102
